FAERS Safety Report 5849151-5 (Version None)
Quarter: 2008Q3

REPORT INFORMATION
  Report Type: 
  Country: None (occurrence: None)
  Receive Date: 20080818
  Receipt Date: 20080818
  Transmission Date: 20090109
  Serious: Yes (Hospitalization)
  Sender: FDA-Public Use
  Company Number: None

PATIENT
  Age: 44 Year
  Sex: Female
  Weight: 87 kg

DRUGS (1)
  1. NILOTINIB 200MG NOVARTIS [Suspect]
     Indication: CHRONIC MYELOID LEUKAEMIA
     Dosage: 200 MG -TWO CAPSULES TWICE DAILY PO
     Route: 048
     Dates: start: 20080801, end: 20080808

REACTIONS (1)
  - PANCREATITIS [None]
